FAERS Safety Report 5327063-3 (Version None)
Quarter: 2007Q2

REPORT INFORMATION
  Report Type: 
  Country: None (occurrence: None)
  Receive Date: 20070517
  Receipt Date: 20070507
  Transmission Date: 20071010
  Serious: Yes (Other)
  Sender: FDA-Public Use
  Company Number: PHEH2007US07228

PATIENT
  Age: 75 Year
  Sex: Female

DRUGS (3)
  1. FORTICAL [Suspect]
     Indication: OSTEOPOROSIS
     Dates: start: 20060301, end: 20070401
  2. SILDENAFIL CITRATE [Suspect]
     Dates: start: 20070401
  3. MIACALCIN [Suspect]
     Indication: OSTEOPOROSIS
     Dosage: 200 IU, QD
     Dates: start: 20030701, end: 20060301

REACTIONS (2)
  - ATROPHY [None]
  - RESTLESS LEGS SYNDROME [None]
